FAERS Safety Report 9870953 (Version 1)
Quarter: 2014Q1

REPORT INFORMATION
  Report Type: Spontaneous
  Country: US (occurrence: None)
  Receive Date: 20140203
  Receipt Date: 20140203
  Transmission Date: 20141002
  Serious: Yes (Hospitalization)
  Sender: FDA-Public Use
  Company Number: 2014010066

PATIENT
  Age: 32 Year
  Sex: Male

DRUGS (4)
  1. ZOLPIDEM (ZOLPIDEM TARTRATE) [Suspect]
     Indication: INSOMNIA
  2. DIPHENOXYLATE (DIPHENOXYLATE) [Concomitant]
  3. XANAX (ALPRAZOLAM) [Concomitant]
  4. ORAP (PIMOZIDE) [Concomitant]

REACTIONS (9)
  - Myalgia [None]
  - Muscle spasms [None]
  - Tic [None]
  - Drug dependence [None]
  - Euphoric mood [None]
  - Convulsion [None]
  - Drug abuse [None]
  - Drug withdrawal syndrome [None]
  - Drug tolerance [None]
